FAERS Safety Report 12355989 (Version 4)
Quarter: 2017Q4

REPORT INFORMATION
  Report Type: Spontaneous
  Country: US (occurrence: US)
  Receive Date: 20160511
  Receipt Date: 20171215
  Transmission Date: 20180320
  Serious: No
  Sender: FDA-Public Use
  Company Number: US-ACTELION-A-NJ2015-118183

PATIENT
  Age: 73 Year
  Sex: Male

DRUGS (17)
  1. VALCHLOR [Suspect]
     Active Substance: MECHLORETHAMINE
     Indication: MYCOSIS FUNGOIDES
     Dosage: UNK, QD
     Route: 061
     Dates: start: 20140506
  2. VITAMIN B12 [Concomitant]
     Active Substance: CYANOCOBALAMIN
  3. VITAMIN D3 [Concomitant]
     Active Substance: CHOLECALCIFEROL
  4. MAGNESIUM [Concomitant]
     Active Substance: MAGNESIUM
  5. NIACIN. [Concomitant]
     Active Substance: NIACIN
  6. DOXAZOSIN MESYLATE. [Concomitant]
     Active Substance: DOXAZOSIN MESYLATE
  7. LEVOTHYROXINE. [Concomitant]
     Active Substance: LEVOTHYROXINE
  8. CALCIUM [Concomitant]
     Active Substance: CALCIUM
  9. MSM [Concomitant]
     Active Substance: DIMETHYL SULFONE
  10. L-ARGININE [Concomitant]
     Active Substance: ARGININE
  11. ASPIRIN. [Concomitant]
     Active Substance: ASPIRIN
  12. BETAMETHASONE. [Concomitant]
     Active Substance: BETAMETHASONE
  13. FISH OIL [Concomitant]
     Active Substance: FISH OIL
  14. ZINC. [Concomitant]
     Active Substance: ZINC
  15. MULTIVITAMIN [Concomitant]
     Active Substance: VITAMINS
  16. GLUCOSAMINE [Concomitant]
     Active Substance: GLUCOSAMINE
  17. POTASSIUM [Concomitant]
     Active Substance: POTASSIUM

REACTIONS (9)
  - Pruritus [Not Recovered/Not Resolved]
  - Application site erosion [Recovered/Resolved]
  - Therapy non-responder [Unknown]
  - Skin burning sensation [Recovered/Resolved]
  - Mycosis fungoides [Not Recovered/Not Resolved]
  - Disease progression [Not Recovered/Not Resolved]
  - Rash [Recovered/Resolved]
  - Pain [Not Recovered/Not Resolved]
  - Erythema [Not Recovered/Not Resolved]
